FAERS Safety Report 9325059 (Version 2)
Quarter: 2013Q2

REPORT INFORMATION
  Report Type: Spontaneous
  Country: US (occurrence: US)
  Receive Date: 20130603
  Receipt Date: 20130618
  Transmission Date: 20140414
  Serious: Yes (Death)
  Sender: FDA-Public Use
  Company Number: US-GILEAD-2013-0076266

PATIENT
  Age: 11 Year
  Sex: Male

DRUGS (4)
  1. LETAIRIS [Suspect]
     Indication: PULMONARY HYPERTENSION
     Dosage: 10 MG, UNK
     Route: 048
     Dates: start: 20100201, end: 201305
  2. LETAIRIS [Suspect]
     Indication: BRONCHOPULMONARY DYSPLASIA
  3. TADALAFIL [Concomitant]
  4. REMODULIN [Concomitant]

REACTIONS (4)
  - Respiratory failure [Fatal]
  - Posterior reversible encephalopathy syndrome [Fatal]
  - Acute respiratory distress syndrome [Fatal]
  - Renal failure acute [Fatal]
